FAERS Safety Report 9754350 (Version 4)
Quarter: 2014Q1

REPORT INFORMATION
  Report Type: Report from Study
  Country: AR (occurrence: AR)
  Receive Date: 20131213
  Receipt Date: 20140106
  Transmission Date: 20141002
  Serious: Yes (Hospitalization, Other)
  Sender: FDA-Public Use
  Company Number: PHHY2013AR139997

PATIENT
  Sex: Male

DRUGS (2)
  1. ONBREZ [Suspect]
     Indication: CHRONIC OBSTRUCTIVE PULMONARY DISEASE
     Dosage: 1 DF, QD
     Route: 048
     Dates: start: 201310
  2. ONBREZ [Suspect]
     Indication: RESPIRATORY DISORDER

REACTIONS (2)
  - Umbilical hernia [Recovering/Resolving]
  - Concomitant disease aggravated [Recovering/Resolving]
